FAERS Safety Report 15334076 (Version 1)
Quarter: 2018Q3

REPORT INFORMATION
  Report Type: Spontaneous
  Country: US (occurrence: US)
  Receive Date: 20180826
  Receipt Date: 20180826
  Transmission Date: 20181010
  Serious: Yes (Hospitalization)
  Sender: FDA-Public Use
  Company Number: None

PATIENT
  Age: 25 Year
  Sex: Female
  Weight: 79.38 kg

DRUGS (1)
  1. NEXPLANON [Suspect]
     Active Substance: ETONOGESTREL
     Dates: start: 20160615, end: 20180824

REACTIONS (5)
  - Malaise [None]
  - Device dislocation [None]
  - Weight increased [None]
  - Embedded device [None]
  - Device damage [None]

NARRATIVE: CASE EVENT DATE: 20180824
